FAERS Safety Report 5213535-9 (Version None)
Quarter: 2007Q1

REPORT INFORMATION
  Report Type: 
  Country: None (occurrence: None)
  Receive Date: 20070119
  Receipt Date: 20070110
  Transmission Date: 20070707
  Serious: Yes (Other)
  Sender: FDA-Public Use
  Company Number: JP-ROCHE-478444

PATIENT
  Age: 13 Year
  Sex: Male

DRUGS (1)
  1. ROCEPHIN [Suspect]
     Indication: APPENDICITIS
     Dosage: DOSE: ABOUT 1G
     Route: 042
     Dates: start: 20060909

REACTIONS (1)
  - CHOLANGITIS SUPPURATIVE [None]
